FAERS Safety Report 6634675-3 (Version None)
Quarter: 2010Q1

REPORT INFORMATION
  Report Type: 
  Country: None (occurrence: None)
  Receive Date: 20100315
  Receipt Date: 20100309
  Transmission Date: 20100710
  Serious: Yes (Other)
  Sender: FDA-Public Use
  Company Number: NL-TEVA-227166ISR

PATIENT
  Sex: Female

DRUGS (1)
  1. AMOXICILLIN AND CLAVULANATE POTASSIUM [Suspect]
     Indication: CYSTITIS
     Dosage: 500/125 MG
     Dates: start: 20081129

REACTIONS (2)
  - AGEUSIA [None]
  - ANOSMIA [None]
